FAERS Safety Report 7340104-7 (Version None)
Quarter: 2011Q1

REPORT INFORMATION
  Report Type: 
  Country: None (occurrence: None)
  Receive Date: 20110301
  Receipt Date: 20110214
  Transmission Date: 20110831
  Serious: Yes (Hospitalization)
  Sender: FDA-Public Use
  Company Number: 1000018920

PATIENT
  Age: 22 Year
  Sex: Female

DRUGS (4)
  1. AMISULPRIDE (AMISULPRIDE) [Suspect]
     Dosage: ORAL
     Route: 048
     Dates: start: 20110114, end: 20110114
  2. LEXOMIL (BROMAZEPAM) [Suspect]
     Dosage: ORAL
     Route: 048
     Dates: start: 20110114, end: 20110114
  3. LEPTICUR (TROPATEPINE HYDROCHLORIDE) [Suspect]
     Dosage: ORAL
     Route: 048
     Dates: start: 20110114, end: 20110114
  4. ESCITALOPRAM OXALATE [Suspect]
     Dosage: ORAL
     Route: 048
     Dates: start: 20110114, end: 20110114

REACTIONS (3)
  - POISONING DELIBERATE [None]
  - MULTIPLE DRUG OVERDOSE [None]
  - RHABDOMYOLYSIS [None]
